FAERS Safety Report 24039575 (Version 1)
Quarter: 2024Q3

REPORT INFORMATION
  Report Type: Spontaneous
  Country: US (occurrence: None)
  Receive Date: 20240702
  Receipt Date: 20240702
  Transmission Date: 20241017
  Serious: Yes (Other)
  Sender: ASTRAZENECA
  Company Number: 2024A150570

PATIENT
  Sex: Male

DRUGS (5)
  1. FARXIGA [Suspect]
     Active Substance: DAPAGLIFLOZIN PROPANEDIOL
     Route: 048
  2. ROSUVASTATIN [Suspect]
     Active Substance: ROSUVASTATIN
     Dosage: TAKE 1 TABLET BY ORAL ROUTE EVERY DAY.
     Route: 048
  3. VYNDAMAX [Suspect]
     Active Substance: TAFAMIDIS
     Dosage: TAKE 1 CAPSULE BY ORAL ROUTE EVERY DAY.
     Route: 048
     Dates: start: 20240619
  4. ENTRESTO [Suspect]
     Active Substance: SACUBITRIL\VALSARTAN
  5. COREG [Suspect]
     Active Substance: CARVEDILOL

REACTIONS (3)
  - Drug interaction [Unknown]
  - Acquired ATTR amyloidosis [Unknown]
  - Cardiomyopathy [Unknown]
